FAERS Safety Report 25266333 (Version 1)
Quarter: 2025Q2

REPORT INFORMATION
  Report Type: Spontaneous
  Country: US (occurrence: US)
  Receive Date: 20250504
  Receipt Date: 20250504
  Transmission Date: 20250717
  Serious: Yes (Hospitalization, Other)
  Sender: ENDO
  Company Number: US-ENDO USA, INC.-2025-001116

PATIENT
  Age: 31 Year
  Sex: Female

DRUGS (6)
  1. KETALAR [Suspect]
     Active Substance: KETAMINE HYDROCHLORIDE
     Indication: Depression
     Route: 041
  2. KETALAR [Suspect]
     Active Substance: KETAMINE HYDROCHLORIDE
     Route: 041
  3. CANNABIS SATIVA SUBSP. INDICA TOP [Suspect]
     Active Substance: CANNABIS SATIVA SUBSP. INDICA TOP
     Indication: Product used for unknown indication
     Route: 065
  4. VENLAFAXINE [Concomitant]
     Active Substance: VENLAFAXINE HYDROCHLORIDE
     Indication: Major depression
     Route: 065
  5. LUMATEPERONE [Concomitant]
     Active Substance: LUMATEPERONE
     Indication: Major depression
     Route: 065
  6. BUPROPION [Concomitant]
     Active Substance: BUPROPION
     Indication: Major depression
     Route: 065

REACTIONS (4)
  - Psychotic disorder [Recovered/Resolved]
  - Potentiating drug interaction [Recovered/Resolved]
  - Dissociative disorder [Recovered/Resolved]
  - Off label use [Unknown]
